FAERS Safety Report 10238076 (Version 2)
Quarter: 2014Q2

REPORT INFORMATION
  Report Type: Spontaneous
  Country: JP (occurrence: JP)
  Receive Date: 20140616
  Receipt Date: 20140616
  Transmission Date: 20141212
  Serious: Yes (Other)
  Sender: FDA-Public Use
  Company Number: JP-JNJFOC-20140515737

PATIENT
  Age: 81 Year
  Sex: Female

DRUGS (3)
  1. ITRIZOLE [Suspect]
     Indication: OESOPHAGEAL CANDIDIASIS
     Route: 048
     Dates: start: 20140421, end: 20140519
  2. ADALAT CR [Interacting]
     Indication: HYPERTENSION
     Route: 048
     Dates: start: 20140514
  3. ADALAT CR [Interacting]
     Indication: HYPERTENSION
     Route: 048
     Dates: end: 20140421

REACTIONS (4)
  - Cardiac failure [Recovering/Resolving]
  - Drug interaction [Unknown]
  - Oedema peripheral [Recovering/Resolving]
  - Urine output decreased [Recovering/Resolving]
